FAERS Safety Report 5147815-2 (Version None)
Quarter: 2006Q4

REPORT INFORMATION
  Report Type: 
  Country: None (occurrence: None)
  Receive Date: 20061107
  Receipt Date: 20061107
  Transmission Date: 20070319
  Serious: Yes (Other)
  Sender: FDA-Public Use
  Company Number: None

PATIENT
  Age: 51 Year
  Sex: Male
  Weight: 90.7194 kg

DRUGS (3)
  1. PIROXICAM [Suspect]
     Indication: JOINT SWELLING
     Dosage: 1 CAPSULE -20 MG- 1 X AFTER SUPPER
     Dates: start: 20061102, end: 20061105
  2. PIROXICAM [Suspect]
     Indication: PAIN
     Dosage: 1 CAPSULE -20 MG- 1 X AFTER SUPPER
     Dates: start: 20061102, end: 20061105
  3. PIROXICAM [Concomitant]

REACTIONS (4)
  - ABDOMINAL PAIN UPPER [None]
  - DYSPNOEA [None]
  - MIDDLE INSOMNIA [None]
  - MOUTH HAEMORRHAGE [None]
